FAERS Safety Report 21910332 (Version 1)
Quarter: 2023Q1

REPORT INFORMATION
  Report Type: Spontaneous
  Country: CH (occurrence: CH)
  Receive Date: 20230125
  Receipt Date: 20230125
  Transmission Date: 20230417
  Serious: Yes (Hospitalization, Other)
  Sender: FDA-Public Use
  Company Number: CH-BRISTOL-MYERS SQUIBB COMPANY-2023-010593

PATIENT
  Age: 70 Year
  Sex: Female
  Weight: 74 kg

DRUGS (5)
  1. ELIQUIS [Suspect]
     Active Substance: APIXABAN
     Indication: Cerebrovascular accident prophylaxis
     Dosage: 10 MG (5 MG, ONCE IN MORNING AND NIGHT)
     Route: 048
     Dates: start: 20221027
  2. DEXAMETHASONE SODIUM PHOSPHATE [Suspect]
     Active Substance: DEXAMETHASONE SODIUM PHOSPHATE
     Indication: Product used for unknown indication
     Route: 048
     Dates: start: 20221027, end: 20221031
  3. REMDESIVIR [Suspect]
     Active Substance: REMDESIVIR
     Indication: Antiviral treatment
     Dosage: TAG 1: 200 MG. TAG 2-5: 100MG (200 MG,1 IN 1 D)
     Route: 042
     Dates: start: 20221027, end: 20221027
  4. REMDESIVIR [Suspect]
     Active Substance: REMDESIVIR
     Dosage: TAG 1: 200 MG. TAG 2-5: 100MG (100 MG,1 IN 1 D)
     Route: 042
     Dates: start: 20221028, end: 20221031
  5. TENORETIC [Suspect]
     Active Substance: ATENOLOL\CHLORTHALIDONE
     Indication: Product used for unknown indication
     Route: 048
     Dates: end: 20221031

REACTIONS (1)
  - Bradycardia [Recovered/Resolved]

NARRATIVE: CASE EVENT DATE: 20221031
